FAERS Safety Report 11092910 (Version 1)
Quarter: 2015Q2

REPORT INFORMATION
  Report Type: Spontaneous
  Country: US (occurrence: US)
  Receive Date: 20150506
  Receipt Date: 20150506
  Transmission Date: 20150821
  Serious: Yes (Hospitalization)
  Sender: FDA-Public Use
  Company Number: US-AMGEN-USASP2015043095

PATIENT
  Age: 75 Year
  Sex: Female

DRUGS (3)
  1. METHOTREXATE [Concomitant]
     Active Substance: METHOTREXATE
     Dosage: QWK
  2. ENBREL [Suspect]
     Active Substance: ETANERCEPT
     Indication: RHEUMATOID ARTHRITIS
     Dosage: UNK
     Route: 065
     Dates: start: 20000101
  3. PREDNISONE. [Concomitant]
     Active Substance: PREDNISONE
     Dosage: 10 MG, QD FOR 40 YEARS

REACTIONS (7)
  - Cataract [Recovered/Resolved]
  - Knee operation [Recovered/Resolved]
  - Muscular weakness [Not Recovered/Not Resolved]
  - Surgery [Recovered/Resolved]
  - Injection site pain [Recovered/Resolved]
  - Eye operation [Recovered/Resolved]
  - Shoulder operation [Recovered/Resolved]
